FAERS Safety Report 6695346-0 (Version None)
Quarter: 2010Q2

REPORT INFORMATION
  Report Type: 
  Country: None (occurrence: None)
  Receive Date: 20100423
  Receipt Date: 20100423
  Transmission Date: 20101027
  Serious: Yes (Life-Threatening, Disabling, Other)
  Sender: FDA-Public Use
  Company Number: None

PATIENT
  Age: 23 Year
  Sex: Female
  Weight: 48.5349 kg

DRUGS (1)
  1. YAZ [Suspect]
     Dosage: 1TB 1X DAILY ORAL
     Route: 048
     Dates: start: 20070901, end: 20071001

REACTIONS (2)
  - NEOPLASM [None]
  - THROMBOSIS [None]
